FAERS Safety Report 5191950-X (Version None)
Quarter: 2006Q4

REPORT INFORMATION
  Report Type: 
  Country: None (occurrence: None)
  Receive Date: 20061227
  Receipt Date: 20061213
  Transmission Date: 20070319
  Serious: Yes (Other)
  Sender: FDA-Public Use
  Company Number: US-BRISTOL-MYERS SQUIBB COMPANY-13619317

PATIENT
  Age: 70 Year
  Sex: Male
  Weight: 70 kg

DRUGS (2)
  1. SINEMET CR [Suspect]
     Route: 048
  2. MIRAPEX [Suspect]

REACTIONS (6)
  - BREATH ODOUR [None]
  - DEPRESSION [None]
  - INSOMNIA [None]
  - NEOPLASM MALIGNANT [None]
  - SKIN ODOUR ABNORMAL [None]
  - TREMOR [None]
